FAERS Safety Report 9792495 (Version 2)
Quarter: 2014Q1

REPORT INFORMATION
  Report Type: Spontaneous
  Country: JP (occurrence: JP)
  Receive Date: 20140102
  Receipt Date: 20140217
  Transmission Date: 20141002
  Serious: Yes (Disabling)
  Sender: FDA-Public Use
  Company Number: JP-JNJFOC-20131218019

PATIENT
  Age: 87 Year
  Sex: Male
  Weight: 52.61 kg

DRUGS (5)
  1. XARELTO [Suspect]
     Indication: CEREBROVASCULAR ACCIDENT PROPHYLAXIS
     Route: 048
  2. UBRETID [Concomitant]
     Route: 048
  3. VASOLAN [Concomitant]
     Route: 048
  4. LIPITOR [Concomitant]
     Route: 048
  5. HARNAL [Concomitant]
     Route: 048

REACTIONS (1)
  - Embolic stroke [Recovered/Resolved with Sequelae]
